FAERS Safety Report 13033368 (Version 2)
Quarter: 2017Q1

REPORT INFORMATION
  Report Type: Spontaneous
  Country: IT (occurrence: IT)
  Receive Date: 20161216
  Receipt Date: 20170102
  Transmission Date: 20170428
  Serious: Yes (Other)
  Sender: FDA-Public Use
  Company Number: IT-ROCHE-1867275

PATIENT
  Age: 26 Year
  Sex: Female

DRUGS (8)
  1. SIMVASTATIN. [Suspect]
     Active Substance: SIMVASTATIN
     Indication: DRUG ABUSE
     Route: 048
     Dates: start: 20161107, end: 20161107
  2. RIVOTRIL [Suspect]
     Active Substance: CLONAZEPAM
     Indication: DRUG ABUSE
     Dosage: 2.5 MG/ML ORAL DROPS, SOLUTION^ 10 ML BOTTLE
     Route: 048
     Dates: start: 20161107, end: 20161107
  3. ACETYLSALICYLIC ACID [Suspect]
     Active Substance: ASPIRIN
     Indication: DRUG ABUSE
     Route: 065
  4. IGROTON [Suspect]
     Active Substance: CHLORTHALIDONE
     Indication: DRUG ABUSE
     Route: 048
     Dates: start: 20161107, end: 20161107
  5. SIMVASTATIN. [Suspect]
     Active Substance: SIMVASTATIN
     Route: 048
     Dates: start: 20161107, end: 20161107
  6. ENTACT [Suspect]
     Active Substance: ESCITALOPRAM OXALATE
     Indication: DRUG ABUSE
     Route: 048
     Dates: start: 20161107, end: 20161107
  7. TORVAST [Suspect]
     Active Substance: ATORVASTATIN
     Indication: DRUG ABUSE
     Route: 048
     Dates: start: 20161107, end: 20161107
  8. DEURSIL [Suspect]
     Active Substance: URSODIOL
     Indication: DRUG ABUSE
     Route: 048
     Dates: start: 20161107, end: 20161107

REACTIONS (3)
  - Poisoning [Recovering/Resolving]
  - Drug abuse [Unknown]
  - Sopor [Recovering/Resolving]

NARRATIVE: CASE EVENT DATE: 20161107
